FAERS Safety Report 8729575 (Version 5)
Quarter: 2013Q2

REPORT INFORMATION
  Report Type: Spontaneous
  Country: US (occurrence: US)
  Receive Date: 20120817
  Receipt Date: 20130419
  Transmission Date: 20140414
  Serious: Yes (Hospitalization)
  Sender: FDA-Public Use
  Company Number: US-B.I. PHARMACEUTICALS,INC./RIDGEFIELD-2012-BP-18730BP

PATIENT
  Age: 78 Year
  Sex: Female
  Weight: 63.6 kg

DRUGS (10)
  1. PRADAXA [Suspect]
     Indication: ANTICOAGULANT THERAPY
     Dosage: 300 MG
     Route: 048
     Dates: start: 20110609, end: 20111016
  2. PRADAXA [Suspect]
     Indication: ATRIAL FIBRILLATION
  3. CRESTOR [Concomitant]
     Dosage: 5 MG
     Dates: start: 2011
  4. ZOLOFT [Concomitant]
     Dosage: 25 MG
     Dates: start: 2010, end: 2011
  5. CARDIZEM [Concomitant]
     Dosage: 360 MG
     Dates: start: 2010, end: 2011
  6. MIRALAX [Concomitant]
     Dosage: 17 G
     Dates: start: 2011
  7. FISH OIL [Concomitant]
     Dosage: 2000 MG
  8. PROTONIX [Concomitant]
     Dates: start: 2011
  9. SYMBICORT [Concomitant]
     Dates: start: 2011
  10. KEPPRA [Concomitant]
     Dosage: 500 MG
     Dates: start: 2011

REACTIONS (5)
  - Gastrointestinal haemorrhage [Recovered/Resolved]
  - Myocardial infarction [Unknown]
  - Haemorrhage [Unknown]
  - Ulcer haemorrhage [Unknown]
  - Haemorrhagic anaemia [Unknown]
